FAERS Safety Report 5672465-9 (Version None)
Quarter: 2008Q1

REPORT INFORMATION
  Report Type: 
  Country: None (occurrence: None)
  Receive Date: 20080319
  Receipt Date: 20080311
  Transmission Date: 20080703
  Serious: Yes (Life-Threatening, Hospitalization, Other)
  Sender: FDA-Public Use
  Company Number: JP-JNJFOC-20080106362

PATIENT
  Sex: Female
  Weight: 39 kg

DRUGS (41)
  1. DUROTEP [Suspect]
     Route: 062
  2. DUROTEP [Suspect]
     Route: 062
  3. DUROTEP [Suspect]
     Route: 062
  4. DUROTEP [Suspect]
     Route: 062
  5. DUROTEP [Suspect]
     Route: 062
  6. DUROTEP [Suspect]
     Indication: GASTRIC CANCER
     Route: 062
  7. FENTANYL CITRATE [Concomitant]
     Route: 042
  8. MIDAZOLAM HCL [Concomitant]
     Indication: MECHANICAL VENTILATION
     Route: 042
  9. MORPHINE HCL ELIXIR [Concomitant]
     Indication: ABDOMINAL PAIN
     Dosage: 20-40MG A DAY
     Route: 042
  10. FLUNITRAZEPAM [Concomitant]
     Indication: SEDATION
     Route: 042
  11. FLUNITRAZEPAM [Concomitant]
     Indication: PAIN
     Route: 042
  12. DOXAPRAM HYDROCHLORIDE [Concomitant]
     Indication: SOMNOLENCE
     Route: 042
  13. DOXAPRAM HYDROCHLORIDE [Concomitant]
     Indication: HYPERCAPNIA
     Route: 042
  14. DESLANOSIDE [Concomitant]
     Indication: HEART RATE
     Route: 042
  15. ULINASTATIN [Concomitant]
     Indication: SHOCK
     Dosage: 300000U/DAY
     Route: 042
  16. FILGRASTIM [Concomitant]
     Indication: NEUTROPENIA
     Route: 058
  17. FILGRASTIM [Concomitant]
     Indication: PYREXIA
     Route: 058
  18. VANCOMYCIN [Concomitant]
     Indication: SEPSIS
     Route: 042
  19. VANCOMYCIN [Concomitant]
     Indication: GIANT PAPILLARY CONJUNCTIVITIS
     Route: 042
  20. HUMAN ANTITHROMBIN [Concomitant]
     Indication: DISSEMINATED INTRAVASCULAR COAGULATION
     Route: 042
  21. AMIKACIN SULPHATE [Concomitant]
     Indication: ENTEROCOLITIS
     Route: 042
  22. AMIKACIN SULPHATE [Concomitant]
     Indication: INFECTION
     Route: 042
  23. BIAPENEM [Concomitant]
     Route: 042
  24. PIPERACILLIN [Concomitant]
     Route: 042
  25. VANCOMYCIN PREPARATIONS [Concomitant]
     Route: 048
  26. VANCOMYCIN PREPARATIONS [Concomitant]
     Route: 048
  27. GABEXATE MESILATE [Concomitant]
     Route: 042
  28. DALTEPARIN SODIUM [Concomitant]
     Route: 042
  29. ALBUMIN (HUMAN) [Concomitant]
     Route: 042
  30. ALBUMIN (HUMAN) [Concomitant]
     Route: 042
  31. PLASMA PROTEIN [Concomitant]
     Route: 042
  32. CARBENICILLIN SODIUM [Concomitant]
     Route: 042
  33. HUMAN PLASMA [Concomitant]
     Route: 041
  34. CONCENTRATED HUMAN BLOOD PLATELET [Concomitant]
     Route: 041
  35. CONCENTRATED HUMAN BLOOD PLATELET [Concomitant]
     Route: 041
  36. CONCENTRATED HUMAN BLOOD PLATELET [Concomitant]
     Route: 041
  37. ANTIBIOTICS-RESISTANT LACTIC ACID [Concomitant]
     Route: 048
  38. CLOSTRIDIUM BUTYRICUM [Concomitant]
     Route: 048
  39. DECADRON [Concomitant]
     Route: 065
  40. ZANTAC [Concomitant]
     Route: 065
  41. HYDROCORTONE [Concomitant]
     Route: 042

REACTIONS (7)
  - ATELECTASIS [None]
  - DEPRESSED LEVEL OF CONSCIOUSNESS [None]
  - DRUG TOXICITY [None]
  - HYPERCAPNIA [None]
  - LOSS OF CONSCIOUSNESS [None]
  - RESPIRATORY DEPRESSION [None]
  - WITHDRAWAL SYNDROME [None]
